FAERS Safety Report 7399188-2 (Version None)
Quarter: 2011Q1

REPORT INFORMATION
  Report Type: 
  Country: None (occurrence: None)
  Receive Date: 20110328
  Receipt Date: 20110316
  Transmission Date: 20110831
  Serious: Yes (Hospitalization)
  Sender: FDA-Public Use
  Company Number: LEO-2011-00265

PATIENT
  Age: 65 Year
  Sex: Female
  Weight: 55 kg

DRUGS (2)
  1. INNOHEP [Suspect]
     Indication: EMBOLISM VENOUS
     Dosage: 0.6 ML (0.6 ML,1 IN 1 D),SUBCUTANEOUS
     Route: 058
     Dates: start: 20110212, end: 20110218
  2. WARFARIN SODIUM [Suspect]
     Indication: EMBOLISM VENOUS
     Dosage: 2 MG (2 MG,1 IN 1 D),ORAL
     Route: 048
     Dates: start: 20110212

REACTIONS (4)
  - C-REACTIVE PROTEIN INCREASED [None]
  - HEMIPARESIS [None]
  - SOMNOLENCE [None]
  - HAEMOGLOBIN DECREASED [None]
